FAERS Safety Report 5310762-7 (Version None)
Quarter: 2007Q2

REPORT INFORMATION
  Report Type: 
  Country: None (occurrence: None)
  Receive Date: 20070428
  Receipt Date: 20070419
  Transmission Date: 20071010
  Serious: Yes (Hospitalization)
  Sender: FDA-Public Use
  Company Number: FR-PFIZER INC-2007026305

PATIENT
  Age: 70 Year
  Sex: Male

DRUGS (3)
  1. ZYVOXID TABLET [Suspect]
     Indication: OSTEITIS
     Route: 048
  2. ZYVOXID TABLET [Suspect]
     Indication: STAPHYLOCOCCAL INFECTION
  3. CIPROFLOXACIN HCL [Suspect]
     Indication: STAPHYLOCOCCAL INFECTION
     Route: 048

REACTIONS (3)
  - ARTHRALGIA [None]
  - POLYARTHRITIS [None]
  - PYREXIA [None]
